FAERS Safety Report 6681370-0 (Version None)
Quarter: 2010Q2

REPORT INFORMATION
  Report Type: 
  Country: None (occurrence: None)
  Receive Date: 20100414
  Receipt Date: 20100318
  Transmission Date: 20101027
  Serious: Yes (Other)
  Sender: FDA-Public Use
  Company Number: A0848367A

PATIENT
  Age: 8 Month
  Sex: Male
  Weight: 9.3 kg

DRUGS (7)
  1. ROTARIX [Suspect]
     Indication: PROPHYLAXIS
     Dosage: 1ML SINGLE DOSE
     Route: 048
     Dates: start: 20090826, end: 20090826
  2. ROTARIX [Suspect]
     Dosage: 1ML SINGLE DOSE
     Route: 048
     Dates: start: 20091028, end: 20091028
  3. AMOXIL [Suspect]
     Indication: SINUSITIS
     Dosage: 1TSP THREE TIMES PER DAY
     Route: 048
     Dates: start: 20100225
  4. NO CONCURRENT MEDICATION [Concomitant]
  5. PEDIARIX [Concomitant]
     Indication: PROPHYLAXIS
     Route: 065
  6. ACTHIB [Concomitant]
     Indication: PROPHYLAXIS
     Route: 065
  7. PREVNAR [Concomitant]
     Indication: PROPHYLAXIS
     Route: 065

REACTIONS (5)
  - DIARRHOEA [None]
  - DIARRHOEA HAEMORRHAGIC [None]
  - GASTROENTERITIS ROTAVIRUS [None]
  - ROTAVIRUS TEST POSITIVE [None]
  - VACCINATION FAILURE [None]
